FAERS Safety Report 10721913 (Version 2)
Quarter: 2016Q2

REPORT INFORMATION
  Report Type: Report from Study
  Country: FR (occurrence: FR)
  Receive Date: 20150120
  Receipt Date: 20160606
  Transmission Date: 20160815
  Serious: Yes (Hospitalization, Other)
  Sender: FDA-Public Use
  Company Number: FR-ROCHE-1164845

PATIENT
  Age: 23 Year
  Sex: Female

DRUGS (16)
  1. CORTANCYL [Concomitant]
     Active Substance: PREDNISONE
     Dosage: PER DAY
     Route: 065
  2. RITUXIMAB [Suspect]
     Active Substance: RITUXIMAB
     Dosage: D15
     Route: 041
     Dates: start: 20081119
  3. METHOTREXATE [Concomitant]
     Active Substance: METHOTREXATE
     Dosage: PER WEEK
     Route: 065
  4. METHOTREXATE [Concomitant]
     Active Substance: METHOTREXATE
     Dosage: PER WEEK
     Route: 065
  5. CORTANCYL [Concomitant]
     Active Substance: PREDNISONE
     Dosage: PER DAY
     Route: 065
  6. CORTANCYL [Concomitant]
     Active Substance: PREDNISONE
     Dosage: PER DAY
     Route: 065
  7. RITUXIMAB [Suspect]
     Active Substance: RITUXIMAB
     Dosage: D15
     Route: 041
     Dates: start: 20060412
  8. RITUXIMAB [Suspect]
     Active Substance: RITUXIMAB
     Dosage: D1, TWICE
     Route: 041
     Dates: start: 20061019
  9. CORTANCYL [Concomitant]
     Active Substance: PREDNISONE
     Dosage: PER DAY
     Route: 065
  10. RITUXIMAB [Suspect]
     Active Substance: RITUXIMAB
     Dosage: D15
     Route: 041
     Dates: start: 20061102
  11. RITUXIMAB [Suspect]
     Active Substance: RITUXIMAB
     Dosage: D1, TWICE
     Route: 041
     Dates: start: 20081105
  12. RITUXIMAB [Suspect]
     Active Substance: RITUXIMAB
     Dosage: D1, TWICE
     Route: 041
     Dates: start: 20091027
  13. RITUXIMAB [Suspect]
     Active Substance: RITUXIMAB
     Dosage: D15
     Route: 041
     Dates: start: 20091118
  14. METHOTREXATE [Concomitant]
     Active Substance: METHOTREXATE
     Route: 065
  15. RITUXIMAB [Suspect]
     Active Substance: RITUXIMAB
     Indication: RHEUMATOID ARTHRITIS
     Dosage: D1
     Route: 041
     Dates: start: 20060329
  16. CORTANCYL [Concomitant]
     Active Substance: PREDNISONE
     Dosage: PER DAY
     Route: 065

REACTIONS (14)
  - Pneumonia [Recovered/Resolved]
  - Lithotripsy [Recovered/Resolved]
  - Pharyngitis [Recovered/Resolved]
  - Spinocerebellar ataxia [Not Recovered/Not Resolved]
  - Pollakiuria [Recovered/Resolved]
  - Influenza like illness [Recovered/Resolved]
  - Pyrexia [Unknown]
  - Diarrhoea [Recovered/Resolved]
  - Paraesthesia [Recovered/Resolved]
  - Nausea [Recovered/Resolved]
  - Hyperhidrosis [Recovered/Resolved]
  - Agranulocytosis [Unknown]
  - Sepsis [Recovered/Resolved]
  - Rhinitis [Recovered/Resolved]

NARRATIVE: CASE EVENT DATE: 200604
